FAERS Safety Report 8652371 (Version 3)
Quarter: 2012Q4

REPORT INFORMATION
  Report Type: 
  Country: US (occurrence: US)
  Receive Date: 20120706
  Receipt Date: 20120921
  Transmission Date: 20130627
  Serious: Yes (Hospitalization)
  Sender: FDA-Public Use
  Company Number: US-UCBSA-060768

PATIENT
  Age: 44 Year
  Sex: Female
  Weight: 81.2 kg

DRUGS (1)
  1. CIMZIA [Suspect]
     Indication: CROHN^S DISEASE
     Dates: start: 20100615

REACTIONS (1)
  - Mental disorder [Recovered/Resolved]
